FAERS Safety Report 9460876 (Version 1)
Quarter: 2013Q3

REPORT INFORMATION
  Report Type: Spontaneous
  Country: US (occurrence: US)
  Receive Date: 20130816
  Receipt Date: 20130816
  Transmission Date: 20140515
  Serious: Yes (Other)
  Sender: FDA-Public Use
  Company Number: US-AMGEN-USASP2013056616

PATIENT
  Sex: Female

DRUGS (4)
  1. ENBREL [Suspect]
     Indication: RHEUMATOID ARTHRITIS
     Dosage: UNK
     Route: 065
  2. HUMIRA [Concomitant]
     Dosage: UNK
  3. CIMZIA [Concomitant]
     Dosage: UNK
  4. ORENCIA [Concomitant]
     Dosage: UNK

REACTIONS (18)
  - Physical disability [Unknown]
  - Kidney infection [Unknown]
  - Staphylococcal infection [Unknown]
  - Escherichia urinary tract infection [Unknown]
  - Pneumonia [Unknown]
  - Stress [Unknown]
  - Immune system disorder [Unknown]
  - Fibromyalgia [Unknown]
  - Sleep apnoea syndrome [Unknown]
  - Tachycardia [Unknown]
  - Migraine [Unknown]
  - Oedema [Unknown]
  - Raynaud^s phenomenon [Unknown]
  - Coagulopathy [Unknown]
  - Hypertension [Unknown]
  - Blood cholesterol increased [Unknown]
  - Mobility decreased [Unknown]
  - Rheumatoid arthritis [Unknown]
